FAERS Safety Report 7397393-2 (Version None)
Quarter: 2011Q2

REPORT INFORMATION
  Report Type: 
  Country: None (occurrence: None)
  Receive Date: 20110401
  Receipt Date: 20110401
  Transmission Date: 20111010
  Serious: Yes (Life-Threatening, Hospitalization)
  Sender: FDA-Public Use
  Company Number: None

PATIENT
  Age: 51 Year
  Sex: Female
  Weight: 56.6996 kg

DRUGS (7)
  1. SINGULAIR [Concomitant]
  2. LASIX [Concomitant]
  3. PHENERGAN HCL [Concomitant]
  4. M.V.I. [Concomitant]
  5. SIMVASTATIN [Concomitant]
  6. DEXILANT [Suspect]
     Indication: GASTROOESOPHAGEAL REFLUX DISEASE
     Dosage: 60 MG DAILY PO
     Route: 048
     Dates: start: 20101116, end: 20110118
  7. HYDROCODONE BITARTRATE [Concomitant]

REACTIONS (4)
  - DIZZINESS [None]
  - EXTRASYSTOLES [None]
  - PALPITATIONS [None]
  - VENTRICULAR TACHYCARDIA [None]
